FAERS Safety Report 9353031 (Version 1)
Quarter: 2013Q2

REPORT INFORMATION
  Report Type: Spontaneous
  Country: US (occurrence: None)
  Receive Date: 20130617
  Receipt Date: 20130617
  Transmission Date: 20140414
  Serious: Yes (Death)
  Sender: FDA-Public Use
  Company Number: None

PATIENT
  Age: 70 Year
  Sex: Male

DRUGS (14)
  1. LETAIRIS [Suspect]
     Indication: PULMONARY HYPERTENSION
     Dosage: 10 MG DAILY BY MOUTH
     Route: 048
     Dates: start: 201304, end: 201306
  2. SILDENAFIL [Concomitant]
  3. FUROSEMIDE [Concomitant]
  4. DIGOXIN [Concomitant]
  5. DIGOXIN [Concomitant]
  6. WARFARIN [Concomitant]
  7. SPIRONOLACTONE [Concomitant]
  8. PRAVASTATIN [Concomitant]
  9. PRAVASTATIN [Concomitant]
  10. TAMSULOSIN [Concomitant]
  11. IPRATROPIUM INHALER [Concomitant]
  12. ALBUTEROL INHALER [Concomitant]
  13. FERROUS GLUCONATE [Concomitant]
  14. DOCUSATE SODIUM [Concomitant]

REACTIONS (8)
  - Bradycardia [None]
  - Hypotension [None]
  - Dyspnoea [None]
  - Respiratory acidosis [None]
  - Renal impairment [None]
  - Respiratory disorder [None]
  - Cardiac arrest [None]
  - No therapeutic response [None]
